FAERS Safety Report 11258109 (Version 5)
Quarter: 2016Q1

REPORT INFORMATION
  Report Type: Report from Study
  Country: US (occurrence: US)
  Receive Date: 20150710
  Receipt Date: 20160323
  Transmission Date: 20160525
  Serious: Yes (Other)
  Sender: FDA-Public Use
  Company Number: PHEH2014US014955

PATIENT
  Age: 28 Year
  Sex: Female

DRUGS (4)
  1. AFINITOR [Suspect]
     Active Substance: EVEROLIMUS
     Indication: ANGIOMYOLIPOMA
     Dosage: 10 MG, QD
     Route: 048
     Dates: start: 20140716, end: 201506
  2. AFINITOR [Suspect]
     Active Substance: EVEROLIMUS
     Dosage: 10 MG, QD
     Route: 048
     Dates: start: 20150701
  3. AFINITOR [Suspect]
     Active Substance: EVEROLIMUS
     Dosage: 7.5 MG, QD
     Route: 048
  4. MULTI VITAMIN [Concomitant]
     Active Substance: VITAMINS
     Indication: PRODUCT USED FOR UNKNOWN INDICATION
     Route: 065

REACTIONS (16)
  - Headache [Unknown]
  - Dizziness [Unknown]
  - Depression [Recovered/Resolved]
  - Depression [Unknown]
  - Mood altered [Recovered/Resolved]
  - Fatigue [Unknown]
  - Fatigue [Recovered/Resolved]
  - Oral pain [Unknown]
  - Abdominal pain [Unknown]
  - Nasopharyngitis [Unknown]
  - Hypersensitivity [Unknown]
  - Mouth ulceration [Recovering/Resolving]
  - Blood pressure increased [Recovered/Resolved]
  - Nausea [Unknown]
  - Drug level increased [Recovered/Resolved]
  - Dizziness [Recovered/Resolved]

NARRATIVE: CASE EVENT DATE: 20140724
